FAERS Safety Report 4615498-3 (Version None)
Quarter: 2005Q1

REPORT INFORMATION
  Report Type: 
  Country: None (occurrence: None)
  Receive Date: 20050317
  Receipt Date: 20050307
  Transmission Date: 20050727
  Serious: Yes (Life-Threatening, Hospitalization)
  Sender: FDA-Public Use
  Company Number: 2005041802

PATIENT
  Age: 57 Year
  Sex: Female

DRUGS (3)
  1. CELECOXIB (CELECOXIB) [Suspect]
     Indication: POLYMYALGIA RHEUMATICA
     Dosage: 400 MG (200 MG, BID), ORAL
     Route: 048
     Dates: start: 20020401, end: 20041220
  2. LEVAXIN (LEVOTHYROXINE SODIUM) [Concomitant]
  3. PREDNISOLONE [Concomitant]

REACTIONS (11)
  - ADRENAL DISORDER [None]
  - AMNESIA [None]
  - BLOOD POTASSIUM DECREASED [None]
  - CARDIAC ARREST [None]
  - COMA [None]
  - FALL [None]
  - FEELING COLD [None]
  - LISTLESS [None]
  - MYOCARDIAL INFARCTION [None]
  - NAUSEA [None]
  - VENTRICULAR FIBRILLATION [None]
